FAERS Safety Report 9891371 (Version 1)
Quarter: 2014Q1

REPORT INFORMATION
  Report Type: Spontaneous
  Country: AR (occurrence: None)
  Receive Date: 20140207
  Receipt Date: 20140207
  Transmission Date: 20141002
  Serious: Yes (Other)
  Sender: FDA-Public Use
  Company Number: VAL_02966_2014

PATIENT
  Age: 37 Year
  Sex: Female

DRUGS (1)
  1. METHYLERGOMETRINE MALEATE (BASOFORTINA- METHYLERGOMETRINE MALEATE) [Suspect]
     Indication: UTERINE DISORDER
     Route: 048

REACTIONS (1)
  - Haemorrhage [None]
